FAERS Safety Report 12971517 (Version 1)
Quarter: 2016Q4

REPORT INFORMATION
  Report Type: Spontaneous
  Country: US (occurrence: US)
  Receive Date: 20161123
  Receipt Date: 20161123
  Transmission Date: 20170207
  Serious: No
  Sender: FDA-Public Use
  Company Number: US-JAZZ-2016-US-019602

PATIENT
  Sex: Female

DRUGS (33)
  1. AMPICILLIN [Concomitant]
     Active Substance: AMPICILLIN
  2. NIACIN. [Concomitant]
     Active Substance: NIACIN
  3. SINGULAIR [Concomitant]
     Active Substance: MONTELUKAST SODIUM
  4. VYVANSE [Concomitant]
     Active Substance: LISDEXAMFETAMINE DIMESYLATE
  5. COLLAGEN [Concomitant]
     Active Substance: COLLAGEN
  6. MIRALAX [Concomitant]
     Active Substance: POLYETHYLENE GLYCOL 3350
  7. MELOXICAM. [Concomitant]
     Active Substance: MELOXICAM
  8. LINZESS [Concomitant]
     Active Substance: LINACLOTIDE
  9. LYSINE [Concomitant]
     Active Substance: LYSINE
  10. CETIRIZINE HCL [Concomitant]
     Active Substance: CETIRIZINE HYDROCHLORIDE
  11. VITAMIN B12 [Concomitant]
     Active Substance: CYANOCOBALAMIN
  12. PROAIR HFA [Concomitant]
     Active Substance: ALBUTEROL SULFATE
  13. OCUVITE [Concomitant]
     Active Substance: VITAMINS
  14. XYREM [Suspect]
     Active Substance: SODIUM OXYBATE
     Indication: NARCOLEPSY
     Dosage: 2.25 G, BID
     Route: 048
     Dates: start: 201601, end: 201602
  15. EPIPEN [Concomitant]
     Active Substance: EPINEPHRINE
  16. MULTIVITAMINS                      /00116001/ [Concomitant]
  17. VITAMIN B-6 [Concomitant]
     Active Substance: PYRIDOXINE
  18. VITAMIN C [Concomitant]
     Active Substance: ASCORBIC ACID
  19. CALCIUM MAGNESIUM + ZINC           /02299101/ [Concomitant]
  20. XYREM [Suspect]
     Active Substance: SODIUM OXYBATE
     Dosage: 4.5 G, BID
     Route: 048
     Dates: start: 201604
  21. LAMOTRIGINE. [Concomitant]
     Active Substance: LAMOTRIGINE
  22. DEPLIN [Concomitant]
     Active Substance: LEVOMEFOLATE CALCIUM
  23. IRON [Concomitant]
     Active Substance: IRON
  24. PROBIOTIC                          /06395501/ [Concomitant]
     Active Substance: BIFIDOBACTERIUM ANIMALIS SUBSP. LACTIS
  25. OMEPRAZOLE. [Concomitant]
     Active Substance: OMEPRAZOLE
  26. VITAMIN D3 [Concomitant]
     Active Substance: CHOLECALCIFEROL
  27. CYMBALTA [Concomitant]
     Active Substance: DULOXETINE HYDROCHLORIDE
  28. MINOCYCLINE HCL [Concomitant]
     Active Substance: MINOCYCLINE HYDROCHLORIDE
  29. BIOTIN [Concomitant]
     Active Substance: BIOTIN
  30. XYREM [Suspect]
     Active Substance: SODIUM OXYBATE
     Indication: CATAPLEXY
     Dosage: DOSE ADJUSTMENTS
     Route: 048
     Dates: start: 201602, end: 201604
  31. CEFADROXIL. [Concomitant]
     Active Substance: CEFADROXIL
  32. FISH OIL CONCENTRATE [Concomitant]
     Active Substance: FISH OIL
  33. SEASONIQUE [Concomitant]
     Active Substance: ETHINYL ESTRADIOL\LEVONORGESTREL

REACTIONS (2)
  - Jaw disorder [Not Recovered/Not Resolved]
  - Myalgia [Not Recovered/Not Resolved]
